FAERS Safety Report 18969004 (Version 1)
Quarter: 2021Q1

REPORT INFORMATION
  Report Type: Spontaneous
  Country: US (occurrence: US)
  Receive Date: 20210304
  Receipt Date: 20210304
  Transmission Date: 20210420
  Serious: Yes (Hospitalization, Other)
  Sender: FDA-Public Use
  Company Number: US-PFIZER INC-2021198578

PATIENT
  Sex: Male

DRUGS (1)
  1. SUTENT [Suspect]
     Active Substance: SUNITINIB MALATE
     Dosage: UNK
     Dates: start: 20210205, end: 20210218

REACTIONS (5)
  - Blood glucose decreased [Unknown]
  - Pyrexia [Unknown]
  - Blood sodium decreased [Unknown]
  - Seizure [Unknown]
  - Hallucination [Unknown]

NARRATIVE: CASE EVENT DATE: 202102
